FAERS Safety Report 5238437-3 (Version None)
Quarter: 2007Q1

REPORT INFORMATION
  Report Type: 
  Country: None (occurrence: None)
  Receive Date: 20070215
  Receipt Date: 20070208
  Transmission Date: 20070707
  Serious: Yes (Hospitalization, Other)
  Sender: FDA-Public Use
  Company Number: HQWYE108122JAN07

PATIENT
  Sex: Female

DRUGS (9)
  1. OSTELUC [Suspect]
     Indication: LUMBAR VERTEBRAL FRACTURE
     Route: 048
     Dates: start: 20050315, end: 20060622
  2. GLORIAMIN [Concomitant]
     Indication: GASTRIC ULCER
     Route: 048
  3. TOFRANIL [Concomitant]
     Indication: DEPRESSION
     Route: 048
     Dates: end: 20050116
  4. LAC B [Concomitant]
     Indication: CONSTIPATION
     Dosage: 1.8 G EVERY
     Route: 048
  5. ACHILLEA/RUBIA ROOT TINCTURE/SENNA FRUIT/SENNA LEAF/TARAXACUM OFFICINA [Concomitant]
     Indication: CONSTIPATION
     Route: 048
     Dates: end: 20050626
  6. OTSUJITOU [Concomitant]
     Indication: CONSTIPATION
     Route: 048
     Dates: end: 20050626
  7. MAGNESIUM OXIDE [Concomitant]
     Indication: CONSTIPATION
     Dosage: .99 GRAIN EVERY 1 DAY
     Route: 045
     Dates: end: 20050626
  8. TAKEPRON [Concomitant]
     Indication: GASTRIC ULCER
     Route: 048
  9. DEPAS [Concomitant]
     Indication: DEPRESSION
     Route: 048

REACTIONS (3)
  - COLITIS COLLAGENOUS [None]
  - COLON CANCER [None]
  - DIARRHOEA [None]
